FAERS Safety Report 6806177-2 (Version None)
Quarter: 2010Q2

REPORT INFORMATION
  Report Type: 
  Country: None (occurrence: None)
  Receive Date: 20100629
  Receipt Date: 20071213
  Transmission Date: 20101027
  Serious: No
  Sender: FDA-Public Use
  Company Number: US-PFIZER INC-2007105305

PATIENT

DRUGS (2)
  1. TIKOSYN [Suspect]
  2. ALL OTHER THERAPEUTIC PRODUCTS [Interacting]

REACTIONS (1)
  - DRUG INTERACTION [None]
